FAERS Safety Report 7940435-3 (Version None)
Quarter: 2011Q4

REPORT INFORMATION
  Report Type: 
  Country: None (occurrence: None)
  Receive Date: 20111128
  Receipt Date: 20111020
  Transmission Date: 20120403
  Serious: Yes (Disabling, Other)
  Sender: FDA-Public Use
  Company Number: US-BAYER-200917916NA

PATIENT
  Age: 42 Year
  Sex: Male

DRUGS (21)
  1. VICODIN [Concomitant]
     Indication: PAIN
     Dates: start: 20080101
  2. PANCRELIPASE [Concomitant]
     Indication: PAIN
     Dates: start: 20080101
  3. MAGNEVIST [Suspect]
  4. NOVOLOG [Concomitant]
     Indication: DIABETES MELLITUS
     Dosage: 100 U/ML
     Dates: start: 20070101
  5. ANTINEOPLASTIC AGENTS [Concomitant]
     Indication: NEOPLASM MALIGNANT
     Dates: start: 20030101, end: 20040101
  6. FEXOFENADINE [Concomitant]
     Indication: MULTIPLE ALLERGIES
  7. DICLOFENAC SODIUM ER [Concomitant]
     Indication: ARTHRITIS
     Route: 048
  8. LANTUS [Concomitant]
     Indication: DIABETES MELLITUS
     Dosage: DOSE: 100 U/ML
     Dates: start: 20070101
  9. OMEGA-3 FATTY ACIDS [Concomitant]
     Indication: BLOOD TRIGLYCERIDES DECREASED
     Dosage: REGIMEN: 4XDAY
  10. LABETALOL HCL [Concomitant]
     Indication: HYPERTENSION
     Route: 048
  11. RANITIDINE [Concomitant]
     Indication: GASTRIC PH DECREASED
  12. GLIPIZIDE [Concomitant]
     Indication: DIABETES MELLITUS
     Route: 048
     Dates: start: 20070101
  13. OMNISCAN [Suspect]
     Indication: NUCLEAR MAGNETIC RESONANCE IMAGING
  14. GLUCAGON [Concomitant]
     Indication: HYPOGLYCAEMIA
  15. CARTIA XT [Concomitant]
     Indication: ANGINA PECTORIS
     Route: 048
  16. MYCOPHENOLATE MOFETIL (CELLCEPT) [Concomitant]
     Indication: IMMUNODEFICIENCY
     Dates: start: 19990101
  17. OPTIMARK [Suspect]
     Indication: NUCLEAR MAGNETIC RESONANCE IMAGING
  18. PROGRAF [Concomitant]
     Indication: IMMUNOSUPPRESSION
     Dates: start: 19990101
  19. PREDNISONE TAB [Concomitant]
     Dates: start: 19920101
  20. THEREMS [Concomitant]
     Indication: VITAMIN SUPPLEMENTATION
  21. PARACETAMOL W/TRAMADOL HYDROCHLORIDE [Concomitant]
     Indication: PAIN
     Dosage: 37.5/ 325 TID

REACTIONS (14)
  - SKIN INDURATION [None]
  - FIBROSIS [None]
  - EMOTIONAL DISTRESS [None]
  - ASTHENIA [None]
  - NEPHROGENIC SYSTEMIC FIBROSIS [None]
  - MUSCULOSKELETAL STIFFNESS [None]
  - SCAR [None]
  - JOINT CONTRACTURE [None]
  - ANXIETY [None]
  - EXTREMITY CONTRACTURE [None]
  - PAIN [None]
  - GENERAL PHYSICAL HEALTH DETERIORATION [None]
  - MOBILITY DECREASED [None]
  - GAIT DISTURBANCE [None]
